FAERS Safety Report 7703693-6 (Version None)
Quarter: 2011Q3

REPORT INFORMATION
  Report Type: 
  Country: None (occurrence: None)
  Receive Date: 20110823
  Receipt Date: 20110819
  Transmission Date: 20111222
  Serious: Yes (Life-Threatening, Hospitalization)
  Sender: FDA-Public Use
  Company Number: JP-B.I. PHARMACEUTICALS,INC./RIDGEFIELD-2011-BP-17363NB

PATIENT
  Age: 90 Year
  Sex: Female

DRUGS (2)
  1. PRADAXA [Suspect]
     Indication: ATRIAL FIBRILLATION
     Dosage: 220 MG
     Route: 048
     Dates: start: 20110421
  2. PRADAXA [Suspect]
     Dosage: 150 MG
     Route: 048

REACTIONS (3)
  - DRUG INEFFECTIVE [None]
  - CEREBRAL INFARCTION [None]
  - HAEMATURIA [None]
